FAERS Safety Report 9406233 (Version 1)
Quarter: 2013Q3

REPORT INFORMATION
  Report Type: Spontaneous
  Country: US (occurrence: US)
  Receive Date: 20130717
  Receipt Date: 20130717
  Transmission Date: 20140515
  Serious: No
  Sender: FDA-Public Use
  Company Number: US-BAUSCH-BL-2012-001391

PATIENT
  Sex: Female

DRUGS (2)
  1. BESIVANCE (BESIFLOXACIN OPHTHALMIC SUSPENSION) 0.6% [Suspect]
     Indication: PREOPERATIVE CARE
     Route: 047
  2. NEPAFENAC [Concomitant]

REACTIONS (3)
  - Off label use [Unknown]
  - Eye pain [Unknown]
  - Eye swelling [Unknown]
